FAERS Safety Report 15932640 (Version 1)
Quarter: 2019Q1

REPORT INFORMATION
  Report Type: Spontaneous
  Country: FR (occurrence: FR)
  Receive Date: 20190207
  Receipt Date: 20190207
  Transmission Date: 20190417
  Serious: Yes (Other)
  Sender: FDA-Public Use
  Company Number: PHHY2019FR028424

PATIENT
  Age: 59 Year
  Sex: Female

DRUGS (1)
  1. AZOPT [Suspect]
     Active Substance: BRINZOLAMIDE
     Indication: ANGLE CLOSURE GLAUCOMA
     Dosage: UNK
     Route: 065
     Dates: start: 201812

REACTIONS (4)
  - Fatigue [Unknown]
  - Barrett^s oesophagus [Unknown]
  - Asthenia [Unknown]
  - Gastrooesophageal reflux disease [Unknown]
